FAERS Safety Report 5993869-0 (Version None)
Quarter: 2008Q4

REPORT INFORMATION
  Report Type: 
  Country: None (occurrence: None)
  Receive Date: 20081212
  Receipt Date: 20080923
  Transmission Date: 20090506
  Serious: No
  Sender: FDA-Public Use
  Company Number: US-ABBOTT-08P-163-0438834-00

PATIENT
  Sex: Female
  Weight: 88.53 kg

DRUGS (8)
  1. HUMIRA [Suspect]
     Indication: RHEUMATOID ARTHRITIS
     Route: 058
     Dates: start: 20050101, end: 20071201
  2. HUMIRA [Suspect]
     Route: 058
     Dates: start: 20080101
  3. TRAMADOL HCL [Concomitant]
     Indication: RHEUMATOID ARTHRITIS
     Route: 048
  4. ETODOLAC [Concomitant]
     Indication: DRUG USE FOR UNKNOWN INDICATION
     Route: 048
     Dates: start: 20050101, end: 20080601
  5. AZATHIOPINE [Concomitant]
     Indication: RHEUMATOID ARTHRITIS
     Route: 048
     Dates: start: 20050101
  6. PREDNISONE TAB [Concomitant]
     Indication: OEDEMA PERIPHERAL
     Route: 048
  7. LEVOTHYROXINE SODIUM [Concomitant]
     Indication: HYPOTHYROIDISM
     Route: 048
     Dates: start: 19780101
  8. FUROSEMIDE [Concomitant]
     Indication: OEDEMA PERIPHERAL
     Route: 048
     Dates: start: 19780101

REACTIONS (6)
  - ARTHRALGIA [None]
  - BLOOD CREATININE INCREASED [None]
  - HAEMORRHOID OPERATION [None]
  - INFECTION [None]
  - POLYPECTOMY [None]
  - THERMAL BURN [None]
